FAERS Safety Report 5413678-0 (Version None)
Quarter: 2007Q3

REPORT INFORMATION
  Report Type: 
  Country: None (occurrence: None)
  Receive Date: 20070810
  Receipt Date: 20070806
  Transmission Date: 20080115
  Serious: Yes (Death, Life-Threatening, Hospitalization)
  Sender: FDA-Public Use
  Company Number: LTI2007A00216

PATIENT
  Age: 73 Year
  Sex: Male

DRUGS (7)
  1. ACTOS [Suspect]
     Indication: TYPE 2 DIABETES MELLITUS
     Dosage: 30 MG (30 MG,1 IN 1 D) ORAL ; 15 MG (15 MG,1 IN 1 D) ORAL
     Route: 048
  2. AMLODIPINE BESYLATE [Concomitant]
  3. BISOPROLOL FUMARATE [Concomitant]
  4. INEXIUM (ESOMEPRAZOLE) [Concomitant]
  5. PRAVASTATIN [Concomitant]
  6. ALLOPURINOL [Concomitant]
  7. LASIX [Concomitant]

REACTIONS (1)
  - ACUTE PULMONARY OEDEMA [None]
